FAERS Safety Report 18985103 (Version 10)
Quarter: 2021Q2

REPORT INFORMATION
  Report Type: Spontaneous
  Country: JP (occurrence: JP)
  Receive Date: 20210309
  Receipt Date: 20210630
  Transmission Date: 20210717
  Serious: Yes (Other)
  Sender: FDA-Public Use
  Company Number: JP-AMGEN-JPNSP2020203267

PATIENT
  Age: 51 Year
  Sex: Male
  Weight: 56 kg

DRUGS (20)
  1. BLINCYTO [Suspect]
     Active Substance: BLINATUMOMAB
     Dosage: 28 MICROGRAM, QD
     Route: 042
     Dates: start: 20210413, end: 20210510
  2. ZOLPIDEM TARTRATE. [Suspect]
     Active Substance: ZOLPIDEM TARTRATE
     Indication: INSOMNIA
     Dosage: 10 MILLIGRAM, QD
     Route: 065
  3. LIORESAL [Concomitant]
     Active Substance: BACLOFEN
     Indication: HICCUPS
     Dosage: 5 MILLIGRAM, AS NECESSARY
     Dates: start: 20201210
  4. BLINCYTO [Suspect]
     Active Substance: BLINATUMOMAB
     Dosage: 28 MICROGRAM
     Route: 041
     Dates: start: 20210224, end: 2021
  5. DEXAMETHASONE. [Concomitant]
     Active Substance: DEXAMETHASONE
     Dosage: 33 MILLIGRAM
  6. DERMOSOL G [Concomitant]
     Indication: DERMATITIS
     Dosage: UNK UNK, BID
     Dates: start: 202011
  7. BLINCYTO [Suspect]
     Active Substance: BLINATUMOMAB
     Dosage: 28 MICROGRAM
     Route: 042
     Dates: start: 20201216, end: 20201230
  8. BLINCYTO [Suspect]
     Active Substance: BLINATUMOMAB
     Dosage: 28 MICROGRAM, QD
     Route: 042
     Dates: start: 20210302, end: 20210330
  9. URSODEOXYCHOLIC ACID [Concomitant]
     Active Substance: URSODIOL
     Indication: LIVER DISORDER
     Dosage: 200 MILLIGRAM, TID
     Dates: start: 202011
  10. OLOPATADINE HYDROCHLORIDE. [Concomitant]
     Active Substance: OLOPATADINE HYDROCHLORIDE
     Indication: DERMATITIS ALLERGIC
     Dosage: 5 MILLIGRAM, BID
  11. LEVETIRACETAM. [Concomitant]
     Active Substance: LEVETIRACETAM
     Dosage: 1000 MILLIGRAM, QD
     Dates: start: 20201209
  12. BLINCYTO [Suspect]
     Active Substance: BLINATUMOMAB
     Dosage: 28 MICROGRAM
     Route: 042
     Dates: start: 20210113, end: 20210210
  13. URSODEOXYCHOLIC ACID [Concomitant]
     Active Substance: URSODIOL
     Indication: PROPHYLAXIS
  14. BLINCYTO [Suspect]
     Active Substance: BLINATUMOMAB
     Indication: B PRECURSOR TYPE ACUTE LEUKAEMIA
     Dosage: 9 MICROGRAM, QD
     Route: 041
     Dates: start: 20201209, end: 20201216
  15. FOIPAN [Concomitant]
     Active Substance: CAMOSTAT MESYLATE
     Indication: PANCREATITIS CHRONIC
     Dosage: 200 MILLIGRAM, BID
     Dates: start: 2017
  16. E KEPPRA [Concomitant]
     Active Substance: LEVETIRACETAM
     Indication: PROPHYLAXIS
     Dosage: 500 MILLIGRAM, BID
     Dates: start: 20201209
  17. MAGMITT [Concomitant]
     Active Substance: MAGNESIUM OXIDE
     Indication: CONSTIPATION
     Dosage: 990 MILLIGRAM, AS NECESSARY
  18. LUNESTA [Suspect]
     Active Substance: ESZOPICLONE
     Indication: INSOMNIA
     Dosage: 2 MILLIGRAM, QD
     Route: 065
  19. ACICLOVIR [Concomitant]
     Active Substance: ACYCLOVIR
     Indication: PROPHYLAXIS
     Dosage: 200 MILLIGRAM, QD
     Dates: start: 2017
  20. DAIPHEN [Concomitant]
     Active Substance: SULFAMETHOXAZOLE\TRIMETHOPRIM
     Indication: PROPHYLAXIS
     Dosage: UNK UNK, QD
     Dates: start: 202011

REACTIONS (8)
  - Platelet count decreased [Recovering/Resolving]
  - Cytomegalovirus test positive [Recovered/Resolved]
  - Neutropenia [Recovered/Resolved]
  - Jugular vein thrombosis [Recovered/Resolved]
  - Cytokine release syndrome [Recovered/Resolved]
  - Vascular device occlusion [Unknown]
  - Delirium [Recovered/Resolved]
  - Immunoglobulins decreased [Recovering/Resolving]

NARRATIVE: CASE EVENT DATE: 20201209
